FAERS Safety Report 10582218 (Version 2)
Quarter: 2015Q3

REPORT INFORMATION
  Report Type: Spontaneous
  Country: US (occurrence: US)
  Receive Date: 20141113
  Receipt Date: 20150901
  Transmission Date: 20151125
  Serious: Yes (Other)
  Sender: FDA-Public Use
  Company Number: US-PFIZER INC-2014312332

PATIENT
  Age: 60 Year
  Sex: Female
  Weight: 52 kg

DRUGS (3)
  1. KLONOPIN [Concomitant]
     Active Substance: CLONAZEPAM
     Indication: ANXIETY
     Dosage: 0.25 MG, AS NEEDED
  2. ZOLOFT [Suspect]
     Active Substance: SERTRALINE HYDROCHLORIDE
     Indication: DEPRESSION
     Dosage: 50 MG, 1X/DAY (DAILY IN THE MORNING)
     Route: 048
  3. ZOLOFT [Suspect]
     Active Substance: SERTRALINE HYDROCHLORIDE
     Indication: ANXIETY

REACTIONS (15)
  - Depression [Unknown]
  - Memory impairment [Unknown]
  - Visual impairment [Unknown]
  - Irritability [Unknown]
  - Restlessness [Unknown]
  - Hypomania [Unknown]
  - Neurotransmitter level altered [Unknown]
  - Drug withdrawal syndrome [Unknown]
  - Anger [Unknown]
  - Anxiety [Unknown]
  - Mania [Unknown]
  - Mood swings [Unknown]
  - Emotional disorder [Unknown]
  - Fear [Unknown]
  - Nervousness [Unknown]
